FAERS Safety Report 5295519-8 (Version None)
Quarter: 2007Q2

REPORT INFORMATION
  Report Type: 
  Country: None (occurrence: None)
  Receive Date: 20070406
  Receipt Date: 20070321
  Transmission Date: 20071010
  Serious: Yes (Life-Threatening, Other)
  Sender: FDA-Public Use
  Company Number: 8017292

PATIENT
  Age: 34 Year
  Sex: Female
  Weight: 85 kg

DRUGS (5)
  1. KEPPRA [Suspect]
     Dosage: 250 MG 1/D PO
     Route: 048
     Dates: start: 20060508, end: 20060523
  2. SEROQUEL /01270902/ [Concomitant]
  3. VALPROATE SODIUM [Concomitant]
  4. METOPROLOL SUCCINATE [Concomitant]
  5. LITHIUM CARBONATE [Concomitant]

REACTIONS (2)
  - MENSTRUATION IRREGULAR [None]
  - OVARIAN ENLARGEMENT [None]
